FAERS Safety Report 24848024 (Version 2)
Quarter: 2025Q1

REPORT INFORMATION
  Report Type: Spontaneous
  Country: RO (occurrence: RO)
  Receive Date: 20250116
  Receipt Date: 20250124
  Transmission Date: 20250409
  Serious: Yes (Hospitalization, Other)
  Sender: NOVARTIS
  Company Number: RO-002147023-NVSC2025RO006790

PATIENT
  Age: 55 Year
  Sex: Male

DRUGS (1)
  1. ELTROMBOPAG OLAMINE [Suspect]
     Active Substance: ELTROMBOPAG OLAMINE
     Indication: Thrombocytopenia
     Dosage: 25 MG, BID (2 PER DAY) (TREATED FOR ABOUT 4 MONTHS)
     Route: 048
     Dates: start: 2024, end: 202412

REACTIONS (7)
  - Syncope [Recovered/Resolved]
  - Epistaxis [Recovered/Resolved]
  - Malaise [Recovered/Resolved]
  - Product availability issue [Recovered/Resolved]
  - Abdominal pain upper [Not Recovered/Not Resolved]
  - Insomnia [Not Recovered/Not Resolved]
  - Limb discomfort [Not Recovered/Not Resolved]

NARRATIVE: CASE EVENT DATE: 20240101
